FAERS Safety Report 8492210-1 (Version None)
Quarter: 2012Q3

REPORT INFORMATION
  Report Type: 
  Country: None (occurrence: None)
  Receive Date: 20120706
  Receipt Date: 20120705
  Transmission Date: 20120928
  Serious: Yes (Hospitalization)
  Sender: FDA-Public Use
  Company Number: FR-ROCHE-1084796

PATIENT
  Sex: Female

DRUGS (6)
  1. CERTICAN [Suspect]
     Indication: PRODUCT USED FOR UNKNOWN INDICATION
     Route: 048
     Dates: start: 20120529, end: 20120620
  2. NEORAL [Concomitant]
     Route: 065
  3. CELLCEPT [Suspect]
     Indication: PRODUCT USED FOR UNKNOWN INDICATION
     Route: 048
     Dates: start: 20110820
  4. NEORAL [Concomitant]
     Route: 065
  5. RUBOZINC [Concomitant]
     Route: 065
     Dates: start: 20120529
  6. VALGANCICLOVIR [Concomitant]
     Route: 065
     Dates: start: 20120529

REACTIONS (2)
  - ANAL ULCER [None]
  - MOUTH ULCERATION [None]
